FAERS Safety Report 23580146 (Version 1)
Quarter: 2024Q1

REPORT INFORMATION
  Report Type: Spontaneous
  Country: US (occurrence: None)
  Receive Date: 20240228
  Receipt Date: 20240228
  Transmission Date: 20240410
  Serious: Yes (Life-Threatening, Hospitalization, Other)
  Sender: FDA-Public Use
  Company Number: None

PATIENT
  Age: 53 Year
  Sex: Male
  Weight: 132.75 kg

DRUGS (8)
  1. SAXENDA [Suspect]
     Active Substance: LIRAGLUTIDE
     Indication: Type 2 diabetes mellitus
     Dosage: FREQUENCY : DAILY;?
     Route: 058
     Dates: start: 20221216, end: 20230503
  2. bupropion XL [Concomitant]
  3. HYDROXYZINE [Concomitant]
  4. LAMOTRIGINE [Concomitant]
  5. losartan/hydrochorothiazide [Concomitant]
  6. METFORMIN [Concomitant]
  7. SERTRALINE [Concomitant]
  8. Armouthyroid [Concomitant]

REACTIONS (3)
  - Enterovesical fistula [None]
  - Flank pain [None]
  - Colectomy [None]

NARRATIVE: CASE EVENT DATE: 20230503
